FAERS Safety Report 21047170 (Version 4)
Quarter: 2022Q3

REPORT INFORMATION
  Report Type: Spontaneous
  Country: US (occurrence: None)
  Receive Date: 20220706
  Receipt Date: 20220927
  Transmission Date: 20221027
  Serious: Yes (Hospitalization)
  Sender: FDA-Public Use
  Company Number: US-ROCHE-3131479

PATIENT
  Sex: Male

DRUGS (8)
  1. XOLAIR [Suspect]
     Active Substance: OMALIZUMAB
     Indication: Urticaria
     Dosage: (STRENGTH: 75MG/0.5ML)
     Route: 058
     Dates: start: 20181024
  2. XOLAIR [Suspect]
     Active Substance: OMALIZUMAB
  3. XOLAIR [Suspect]
     Active Substance: OMALIZUMAB
  4. XOLAIR [Suspect]
     Active Substance: OMALIZUMAB
     Dosage: STRENGTH;150 MG/ML
     Route: 058
     Dates: start: 20211024
  5. XOLAIR [Suspect]
     Active Substance: OMALIZUMAB
  6. XOLAIR [Suspect]
     Active Substance: OMALIZUMAB
  7. OFEV [Suspect]
     Active Substance: NINTEDANIB
     Indication: Product used for unknown indication
     Route: 065
  8. REMODULIN [Concomitant]
     Active Substance: TREPROSTINIL
     Dosage: VIA MS 3 PUMP
     Route: 058

REACTIONS (2)
  - Off label use [Unknown]
  - Haematemesis [Unknown]
